FAERS Safety Report 13175287 (Version 1)
Quarter: 2017Q1

REPORT INFORMATION
  Report Type: Other
  Country: US (occurrence: US)
  Receive Date: 20170201
  Receipt Date: 20170201
  Transmission Date: 20170428
  Serious: Yes (Hospitalization)
  Sender: FDA-Public Use
  Company Number: US-DOLGENCORP-1062612

PATIENT
  Age: 88 Year
  Sex: Male

DRUGS (2)
  1. LISINOPRIL. [Concomitant]
     Active Substance: LISINOPRIL
  2. STOOL SOFTENER (DOCUSATE SODIUM) [Suspect]
     Active Substance: DOCUSATE SODIUM
     Indication: CONSTIPATION
     Route: 048
     Dates: start: 20170108, end: 20170108

REACTIONS (6)
  - Throat irritation [Recovered/Resolved]
  - Cough [None]
  - Product solubility abnormal [None]
  - Drug ineffective [None]
  - Dysphagia [None]
  - Aphonia [Recovered/Resolved]

NARRATIVE: CASE EVENT DATE: 20170108
